FAERS Safety Report 7705210-3 (Version None)
Quarter: 2011Q3

REPORT INFORMATION
  Report Type: 
  Country: None (occurrence: None)
  Receive Date: 20110818
  Receipt Date: 20110809
  Transmission Date: 20111222
  Serious: Yes (Hospitalization)
  Sender: FDA-Public Use
  Company Number: 2011080066

PATIENT
  Age: 58 Year
  Sex: Female
  Weight: 75.5 kg

DRUGS (10)
  1. CALCIUM/VITAMIN D(CALCIUM, CHOLECALCIFEROL) [Concomitant]
  2. GLUCOSAMINE PLUS MSM (GLUCOSAMINE, METHYLSULPHONYLMETHANE) [Concomitant]
  3. IBUPROFEN [Concomitant]
  4. ROZEREM [Concomitant]
  5. E2007 (INVESTIGATIONAL DRUG) (PERAPANEL) [Suspect]
     Dosage: CONVERSION PHASE (6 IN 1 D), ORAL  OPEN LABEL PHASE MAINTNEANCE PHASE (2 MG, 6 IN 1 D), ORAL
     Route: 048
     Dates: start: 20090101
  6. MULTIVITAMIN [Concomitant]
  7. FISH OIL (FISH OIL) [Concomitant]
  8. FELBATOL [Suspect]
     Indication: EPILEPSY
     Dosage: 900 MG TWICE DAILY, 1200 MG
     Dates: start: 20061123
  9. TRAMADOL HYDROCHLORIDE [Concomitant]
  10. TOPIRAMATE [Concomitant]

REACTIONS (3)
  - ANAEMIA [None]
  - OSTEOARTHRITIS [None]
  - PYREXIA [None]
